FAERS Safety Report 18549509 (Version 2)
Quarter: 2020Q4

REPORT INFORMATION
  Report Type: Spontaneous
  Country: AU (occurrence: AU)
  Receive Date: 20201126
  Receipt Date: 20201202
  Transmission Date: 20210114
  Serious: Yes (Death, Hospitalization, Other)
  Sender: FDA-Public Use
  Company Number: AU-PFIZER INC-9724672

PATIENT
  Age: 22 Year
  Sex: Male

DRUGS (5)
  1. SERTRALINE HCL [Suspect]
     Active Substance: SERTRALINE HYDROCHLORIDE
     Indication: DEPRESSION
     Dosage: UNK
     Route: 048
  2. PIMOZIDE. [Interacting]
     Active Substance: PIMOZIDE
     Dosage: UNK
     Route: 048
  3. BENZTROPINE [BENZATROPINE MESILATE] [Concomitant]
     Active Substance: BENZTROPINE MESYLATE
     Route: 048
  4. MOCLOBEMIDE [Interacting]
     Active Substance: MOCLOBEMIDE
     Dosage: UNK
     Route: 048
  5. HALOPERIDOL. [Concomitant]
     Active Substance: HALOPERIDOL
     Route: 048

REACTIONS (5)
  - Serotonin syndrome [Fatal]
  - Somnolence [Unknown]
  - Toxicity to various agents [Fatal]
  - Hallucination [Unknown]
  - Drug interaction [Fatal]
